FAERS Safety Report 6888132-X (Version None)
Quarter: 2010Q3

REPORT INFORMATION
  Report Type: 
  Country: None (occurrence: None)
  Receive Date: 20100708
  Receipt Date: 20091201
  Transmission Date: 20110219
  Serious: Yes (Other)
  Sender: FDA-Public Use
  Company Number: 2009287223

PATIENT
  Age: 50 Year
  Sex: Female
  Weight: 88.4 kg

DRUGS (6)
  1. CHANTIX [Suspect]
     Dates: start: 20090901, end: 20091014
  2. ASENDIN [Concomitant]
  3. LEXAPRO [Concomitant]
  4. HYDROCHLOROTHIAZIDE [Concomitant]
  5. LISINOPRIL [Concomitant]
  6. LEVOTHYROXINE (LEVOXYTHROXINE) [Concomitant]

REACTIONS (6)
  - DEPRESSION [None]
  - FEELING ABNORMAL [None]
  - HALLUCINATION, AUDITORY [None]
  - PANIC ATTACK [None]
  - SUICIDAL BEHAVIOUR [None]
  - THINKING ABNORMAL [None]
